FAERS Safety Report 17730609 (Version 1)
Quarter: 2020Q2

REPORT INFORMATION
  Report Type: Spontaneous
  Country: FR (occurrence: FR)
  Receive Date: 20200430
  Receipt Date: 20200430
  Transmission Date: 20200714
  Serious: Yes (Other)
  Sender: FDA-Public Use
  Company Number: FR-US-PROVELL PHARMACEUTICALS LLC-9071647

PATIENT
  Sex: Male

DRUGS (2)
  1. LEVOTHYROX [Suspect]
     Active Substance: LEVOTHYROXINE
     Indication: PRODUCT USED FOR UNKNOWN INDICATION
  2. CHLOROQUINE. [Suspect]
     Active Substance: CHLOROQUINE
     Indication: PRODUCT USED FOR UNKNOWN INDICATION

REACTIONS (7)
  - Back pain [Recovering/Resolving]
  - Myalgia [Unknown]
  - Dysstasia [Unknown]
  - Headache [Recovering/Resolving]
  - Pain [Recovering/Resolving]
  - Adverse event [Unknown]
  - Ill-defined disorder [Recovered/Resolved]
